FAERS Safety Report 13894379 (Version 1)
Quarter: 2017Q3

REPORT INFORMATION
  Report Type: Spontaneous
  Country: JP (occurrence: JP)
  Receive Date: 20170822
  Receipt Date: 20170822
  Transmission Date: 20171127
  Serious: Yes (Hospitalization, Other)
  Sender: FDA-Public Use
  Company Number: JP-GLENMARK PHARMACEUTICALS-2017GMK028529

PATIENT
  Age: 41 Year
  Sex: Male
  Weight: 52.5 kg

DRUGS (3)
  1. ALUMINIUM POTASSIUM SULFATE [Suspect]
     Active Substance: POTASSIUM ALUM ANHYDROUS
     Indication: HAEMORRHOIDS
     Dosage: UNK
     Route: 065
  2. LIDOCAINE. [Suspect]
     Active Substance: LIDOCAINE
     Indication: HAEMORRHOIDS
     Dosage: UNK
     Route: 065
  3. TANNIC ACID [Suspect]
     Active Substance: TANNIC ACID
     Indication: HAEMORRHOIDS
     Dosage: UNK
     Route: 065

REACTIONS (1)
  - Drug-induced liver injury [Recovering/Resolving]
